FAERS Safety Report 21974209 (Version 7)
Quarter: 2024Q2

REPORT INFORMATION
  Report Type: Other
  Country: JP (occurrence: JP)
  Receive Date: 20230209
  Receipt Date: 20240430
  Transmission Date: 20240716
  Serious: Yes (Other)
  Sender: FDA-Public Use
  Company Number: JP-CHUGAI-2022028318

PATIENT
  Age: 72 Year
  Sex: Female

DRUGS (2)
  1. TECENTRIQ [Suspect]
     Active Substance: ATEZOLIZUMAB
     Indication: Hepatocellular carcinoma
     Route: 041
     Dates: start: 20211110
  2. AVASTIN [Suspect]
     Active Substance: BEVACIZUMAB
     Indication: Hepatocellular carcinoma
     Route: 041
     Dates: start: 20211110

REACTIONS (20)
  - Hypothyroidism [Not Recovered/Not Resolved]
  - Adrenal insufficiency [Recovered/Resolved]
  - Hepatic encephalopathy [Unknown]
  - Nausea [Unknown]
  - Dyspnoea [Recovered/Resolved]
  - Dyspnoea exertional [Recovered/Resolved]
  - Pyrexia [Recovered/Resolved]
  - Polymyalgia rheumatica [Unknown]
  - Anaemia [Unknown]
  - Altered state of consciousness [Recovered/Resolved]
  - Hypertension [Unknown]
  - Encephalopathy [Unknown]
  - Chest discomfort [Recovered/Resolved]
  - Weight increased [Recovered/Resolved]
  - Seizure [Unknown]
  - Hepatic function abnormal [Unknown]
  - Oedema peripheral [Recovered/Resolved]
  - Hyperammonaemia [Unknown]
  - Pain [Recovered/Resolved]
  - Oedema [Unknown]

NARRATIVE: CASE EVENT DATE: 20211116
